FAERS Safety Report 24616008 (Version 1)
Quarter: 2024Q4

REPORT INFORMATION
  Report Type: Report from Study
  Country: CO (occurrence: CO)
  Receive Date: 20241113
  Receipt Date: 20241113
  Transmission Date: 20250114
  Serious: Yes (Other)
  Sender: ABBVIE
  Company Number: CO-ABBVIE-6003105

PATIENT
  Sex: Male
  Weight: 3.41 kg

DRUGS (1)
  1. SKYRIZI [Suspect]
     Active Substance: RISANKIZUMAB-RZAA
     Indication: Maternal exposure timing unspecified
     Dosage: FORM STRENGTH: 150 MILLIGRAM
     Route: 064

REACTIONS (3)
  - Vital functions abnormal [Unknown]
  - Foetal exposure during pregnancy [Unknown]
  - Umbilical cord abnormality [Unknown]
